FAERS Safety Report 17270071 (Version 1)
Quarter: 2020Q1

REPORT INFORMATION
  Report Type: Spontaneous
  Country: US (occurrence: US)
  Receive Date: 20200114
  Receipt Date: 20200114
  Transmission Date: 20200409
  Serious: No
  Sender: FDA-Public Use
  Company Number: US-PARI RESPIRATORY EQUIPMENT, INC.-2019PAR00112

PATIENT
  Age: 15 Year
  Sex: Male
  Weight: 63.04 kg

DRUGS (4)
  1. AZITHROMYCIN ANHYDROUS. [Concomitant]
     Active Substance: AZITHROMYCIN ANHYDROUS
     Dosage: 500 MG
  2. SYMDEKO [Concomitant]
     Active Substance: IVACAFTOR\TEZACAFTOR
  3. KITABIS PAK [Suspect]
     Active Substance: TOBRAMYCIN
     Dosage: 300 MG, 2X/DAY (FOR 28 DAYS ONLY)
  4. PULMOZYME [Concomitant]
     Active Substance: DORNASE ALFA

REACTIONS (1)
  - Culture throat positive [Unknown]

NARRATIVE: CASE EVENT DATE: 201910
